APPROVED DRUG PRODUCT: TRIPROLIDINE HYDROCHLORIDE, PSEUDOEPHEDRINE HYDROCHLORIDE AND CODEINE PHOSPHATE
Active Ingredient: CODEINE PHOSPHATE; PSEUDOEPHEDRINE HYDROCHLORIDE; TRIPROLIDINE HYDROCHLORIDE
Strength: 10MG/5ML;30MG/5ML;1.25MG/5ML
Dosage Form/Route: SYRUP;ORAL
Application: A088833 | Product #001
Applicant: WOCKHARDT EU OPERATIONS (SWISS) AG
Approved: Nov 16, 1984 | RLD: No | RS: No | Type: DISCN